FAERS Safety Report 9377313 (Version 1)
Quarter: 2013Q3

REPORT INFORMATION
  Report Type: Spontaneous
  Country: CA (occurrence: CA)
  Receive Date: 20130701
  Receipt Date: 20130701
  Transmission Date: 20140515
  Serious: Yes (Hospitalization)
  Sender: FDA-Public Use
  Company Number: CA-BIOGENIDEC-2013BI057142

PATIENT
  Age: 51 Year
  Sex: Male

DRUGS (1)
  1. TYSABRI [Suspect]
     Indication: MULTIPLE SCLEROSIS
     Route: 042
     Dates: start: 20110101, end: 20130422

REACTIONS (4)
  - Renal failure [Not Recovered/Not Resolved]
  - Local swelling [Not Recovered/Not Resolved]
  - Confusional state [Unknown]
  - Fall [Recovered/Resolved]
